FAERS Safety Report 16008521 (Version 1)
Quarter: 2019Q1

REPORT INFORMATION
  Report Type: Spontaneous
  Country: US (occurrence: US)
  Receive Date: 20190226
  Receipt Date: 20190226
  Transmission Date: 20190418
  Serious: No
  Sender: FDA-Public Use
  Company Number: US-AMAG PHARMACEUTICALS, INC.-AMAG201806550

PATIENT
  Age: 60 Year
  Sex: Female
  Weight: 79.37 kg

DRUGS (6)
  1. SYNTHROID [Concomitant]
     Active Substance: LEVOTHYROXINE SODIUM
     Indication: HYPOTHYROIDISM
     Dosage: 112 ?G, QD
     Route: 048
     Dates: start: 2004
  2. TRAMADOL. [Concomitant]
     Active Substance: TRAMADOL
     Indication: SPINAL COLUMN STENOSIS
     Dosage: 50 MG, BID
     Route: 048
     Dates: start: 2015
  3. PRILOSEC [Concomitant]
     Active Substance: OMEPRAZOLE MAGNESIUM
     Indication: GASTROOESOPHAGEAL REFLUX DISEASE
     Dosage: 20 MG, PRN
     Route: 048
     Dates: start: 2013
  4. INTRAROSA [Suspect]
     Active Substance: PRASTERONE
     Indication: ATROPHIC VULVOVAGINITIS
     Dosage: 6.5 MG, QHS
     Route: 067
     Dates: start: 20181101, end: 20181105
  5. IBUPROFEN. [Concomitant]
     Active Substance: IBUPROFEN
     Indication: PAIN
     Dosage: 600 MG, PRN
     Route: 048
  6. CYCLOBENZAPRINE. [Concomitant]
     Active Substance: CYCLOBENZAPRINE
     Indication: PAIN
     Dosage: 10 MG, QD
     Route: 048
     Dates: start: 2015

REACTIONS (5)
  - Off label use [Unknown]
  - Swelling [Recovered/Resolved]
  - Pruritus [Recovered/Resolved]
  - Tissue irritation [Recovered/Resolved]
  - Pain [Recovered/Resolved]

NARRATIVE: CASE EVENT DATE: 20181101
